FAERS Safety Report 19613526 (Version 1)
Quarter: 2021Q3

REPORT INFORMATION
  Report Type: Spontaneous
  Country: US (occurrence: US)
  Receive Date: 20210726
  Receipt Date: 20210726
  Transmission Date: 20211014
  Serious: Yes (Hospitalization)
  Sender: FDA-Public Use
  Company Number: None

PATIENT
  Age: 67 Year
  Sex: Male

DRUGS (1)
  1. ASTAGRAF XL [Suspect]
     Active Substance: TACROLIMUS
     Indication: ORGAN TRANSPLANT
     Dates: start: 20191124

REACTIONS (2)
  - Pyrexia [None]
  - Dyspnoea [None]
